FAERS Safety Report 5154806-4 (Version None)
Quarter: 2006Q4

REPORT INFORMATION
  Report Type: 
  Country: None (occurrence: None)
  Receive Date: 20061115
  Receipt Date: 20061115
  Transmission Date: 20070319
  Serious: Yes (Other)
  Sender: FDA-Public Use
  Company Number: None

PATIENT
  Age: 32 Year
  Sex: Female
  Weight: 72.5755 kg

DRUGS (1)
  1. ACETAMINOPHEN [Suspect]
     Indication: MIGRAINE
     Dosage: 1 TO 2 CAPLETS 1-2 BID PRN PO
     Route: 048
     Dates: start: 20060811, end: 20061016

REACTIONS (4)
  - ABORTION SPONTANEOUS [None]
  - DRUG EXPOSURE DURING PREGNANCY [None]
  - HAEMORRHAGE [None]
  - MUSCLE SPASMS [None]
